FAERS Safety Report 26097387 (Version 1)
Quarter: 2025Q4

REPORT INFORMATION
  Report Type: Spontaneous
  Country: US (occurrence: US)
  Receive Date: 20251127
  Receipt Date: 20251127
  Transmission Date: 20260117
  Serious: Yes (Hospitalization, Other)
  Sender: AMGEN
  Company Number: US-AMGEN-USASP2025228742

PATIENT
  Age: 49 Year
  Sex: Female

DRUGS (3)
  1. PREDNISONE [Suspect]
     Active Substance: PREDNISONE
     Indication: Myasthenia gravis
     Dosage: 30 MILLIGRAM, QD
     Route: 065
  2. MYCOPHENOLATE MOFETIL [Concomitant]
     Active Substance: MYCOPHENOLATE MOFETIL
     Indication: Myasthenia gravis
     Dosage: 1000 MILLIGRAM, BID
  3. Immunoglobulin [Concomitant]
     Indication: Myasthenia gravis
     Dosage: UNK, QMO
     Route: 040

REACTIONS (9)
  - Infection [Unknown]
  - Abdominal wall abscess [Unknown]
  - Haematoma infection [Unknown]
  - Mycobacterial infection [Recovered/Resolved]
  - Mass [Recovered/Resolved]
  - Haemorrhage subcutaneous [Recovered/Resolved]
  - Steroid diabetes [Unknown]
  - Hip fracture [Unknown]
  - Off label use [Unknown]
